FAERS Safety Report 9744308 (Version 1)
Quarter: 2013Q4

REPORT INFORMATION
  Report Type: Spontaneous
  Country: CA (occurrence: CA)
  Receive Date: 20131210
  Receipt Date: 20131210
  Transmission Date: 20140711
  Serious: Yes (Hospitalization)
  Sender: FDA-Public Use
  Company Number: CA-B.I. PHARMACEUTICALS,INC./RIDGEFIELD-2013-BI-40769CN

PATIENT
  Age: 86 Week
  Sex: Male
  Weight: 100 kg

DRUGS (13)
  1. PRADAXA [Suspect]
     Dosage: 220 MG
     Route: 048
  2. ADVAIR [Concomitant]
  3. ASA [Concomitant]
  4. ATORVASTATIN CALCIUM [Concomitant]
  5. FUROSEMIDE [Concomitant]
  6. METOPROLOL [Concomitant]
  7. NIFEDIPINE XL [Concomitant]
  8. RABEPRAZOLE EC [Concomitant]
  9. SALBUTAMOL [Concomitant]
  10. SPIRIVA [Concomitant]
  11. TAMSULOSIN CR [Concomitant]
  12. TEMAZEPAM [Concomitant]
  13. VALSARTAN/HCTZ [Concomitant]

REACTIONS (12)
  - Activated partial thromboplastin time prolonged [Unknown]
  - Blood creatinine increased [Unknown]
  - Blood fibrinogen decreased [Unknown]
  - Blood urea increased [Unknown]
  - Dizziness [Unknown]
  - Fall [Unknown]
  - Gastrointestinal haemorrhage [Unknown]
  - Haematocrit decreased [Unknown]
  - Haemoglobin decreased [Unknown]
  - International normalised ratio increased [Unknown]
  - Red blood cell count decreased [Unknown]
  - Syncope [Unknown]
